FAERS Safety Report 7148570-7 (Version None)
Quarter: 2010Q4

REPORT INFORMATION
  Report Type: 
  Country: None (occurrence: None)
  Receive Date: 20101126
  Receipt Date: 20101110
  Transmission Date: 20110411
  Serious: Yes (Hospitalization)
  Sender: FDA-Public Use
  Company Number: 2010BI034864

PATIENT
  Age: 42 Year
  Sex: Female
  Weight: 61 kg

DRUGS (8)
  1. ZEVALIN [Suspect]
     Indication: NON-HODGKIN'S LYMPHOMA RECURRENT
     Dosage: 0.4 MCG/KG;1X;IV
     Route: 042
     Dates: start: 20100610, end: 20100610
  2. ZEVALIN [Suspect]
     Indication: STEM CELL TRANSPLANT
     Dosage: 0.4 MCG/KG;1X;IV
     Route: 042
     Dates: start: 20100610, end: 20100610
  3. RITUXIMAB [Concomitant]
  4. BUSULFAN [Concomitant]
  5. THYMOGLOBULIN [Concomitant]
  6. CYCLOSPORINE [Concomitant]
  7. FLUDARABINE PHOSPHATE [Concomitant]
  8. PREV MEDS [Concomitant]

REACTIONS (4)
  - ACUTE GRAFT VERSUS HOST DISEASE IN INTESTINE [None]
  - CHILLS [None]
  - FEBRILE BONE MARROW APLASIA [None]
  - STEM CELL TRANSPLANT [None]
